FAERS Safety Report 14840932 (Version 6)
Quarter: 2018Q4

REPORT INFORMATION
  Report Type: Spontaneous
  Country: US (occurrence: US)
  Receive Date: 20180503
  Receipt Date: 20181220
  Transmission Date: 20190204
  Serious: No
  Sender: FDA-Public Use
  Company Number: US-PFIZER INC-2018182076

PATIENT
  Age: 58 Year
  Sex: Female
  Weight: 62.13 kg

DRUGS (9)
  1. VENLAFAXINE HCL [Suspect]
     Active Substance: VENLAFAXINE HYDROCHLORIDE
     Indication: DEPRESSION
     Dosage: 150 MG, UNK
  2. VENLAFAXINE HCL [Suspect]
     Active Substance: VENLAFAXINE HYDROCHLORIDE
     Indication: PAIN
     Dosage: 1.5 DF, 2X/DAY
     Route: 048
     Dates: start: 2018
  3. EFFEXOR XR [Suspect]
     Active Substance: VENLAFAXINE HYDROCHLORIDE
     Indication: MAJOR DEPRESSION
     Dosage: 300 MG, DAILY (Q AM)
     Route: 048
  4. GABAPENTIN. [Concomitant]
     Active Substance: GABAPENTIN
     Indication: ANALGESIC THERAPY
  5. EFFEXOR XR [Suspect]
     Active Substance: VENLAFAXINE HYDROCHLORIDE
     Indication: ANXIETY
     Dosage: 150 MG, 1X/DAY, (EVERY MORNING)
     Route: 048
     Dates: start: 2013, end: 201811
  6. GABAPENTIN. [Concomitant]
     Active Substance: GABAPENTIN
     Indication: PAIN
     Dosage: 400 MG, 3X/DAY
     Route: 048
  7. BUPROPION. [Concomitant]
     Active Substance: BUPROPION
     Dosage: UNK, DAILY
     Route: 048
     Dates: start: 2017
  8. VENLAFAXINE HCL [Suspect]
     Active Substance: VENLAFAXINE HYDROCHLORIDE
     Indication: DEPRESSION
     Dosage: 1.5 DF, 3X/DAY ^1.5 TABLET BY MOUTH THREE TIMES A DAY^
     Route: 048
     Dates: start: 1994
  9. VENLAFAXINE HCL [Suspect]
     Active Substance: VENLAFAXINE HYDROCHLORIDE
     Indication: SEROTONIN SYNDROME

REACTIONS (2)
  - Hypertension [Not Recovered/Not Resolved]
  - Drug ineffective [Unknown]

NARRATIVE: CASE EVENT DATE: 2013
